FAERS Safety Report 4505827-3 (Version None)
Quarter: 2004Q4

REPORT INFORMATION
  Report Type: 
  Country: None (occurrence: None)
  Receive Date: 20041025
  Receipt Date: 20040802
  Transmission Date: 20050328
  Serious: Yes (Other)
  Sender: FDA-Public Use
  Company Number: US-JNJFOC-20040306080

PATIENT
  Age: 39 Year
  Sex: Female
  Weight: 75.2971 kg

DRUGS (12)
  1. REMICADE [Suspect]
     Indication: CROHN'S DISEASE
     Dosage: 500 MG, 1 IN 6 WEEK, INTRAVENOUS
     Route: 042
     Dates: start: 20040101
  2. REMICADE [Suspect]
     Indication: CROHN'S DISEASE
     Dosage: 500 MG, 1 IN 6 WEEK, INTRAVENOUS
     Route: 042
     Dates: start: 20040213
  3. REMICADE [Suspect]
     Indication: CROHN'S DISEASE
     Dosage: 500 MG, 1 IN 6 WEEK, INTRAVENOUS
     Route: 042
     Dates: start: 20040325
  4. ALLEGRA [Concomitant]
  5. FOSAMAX [Concomitant]
  6. OXYCONTIN [Concomitant]
  7. PERCOCET [Concomitant]
  8. B-12 (CYANOCOBALAMIN) [Concomitant]
  9. PREVACID [Concomitant]
  10. HUMALOG [Concomitant]
  11. EFFEXOR XR [Concomitant]
  12. PREDNISONE [Concomitant]

REACTIONS (8)
  - BLOOD PRESSURE ABNORMAL [None]
  - DEEP VEIN THROMBOSIS [None]
  - GRAVITATIONAL OEDEMA [None]
  - INFUSION SITE REACTION [None]
  - PAIN [None]
  - PHLEBITIS [None]
  - SWELLING [None]
  - URINARY TRACT INFECTION [None]
